FAERS Safety Report 6663733-2 (Version None)
Quarter: 2010Q1

REPORT INFORMATION
  Report Type: 
  Country: None (occurrence: None)
  Receive Date: 20100331
  Receipt Date: 20100331
  Transmission Date: 20100710
  Serious: Yes (Other)
  Sender: FDA-Public Use
  Company Number: None

PATIENT
  Age: 14 Year
  Sex: Female
  Weight: 84.369 kg

DRUGS (2)
  1. INTUNIV [Suspect]
     Indication: IMPULSE-CONTROL DISORDER
     Dates: start: 20100313, end: 20100317
  2. AMOXICILLIN [Concomitant]

REACTIONS (2)
  - DISORIENTATION [None]
  - SOMNOLENCE [None]
